FAERS Safety Report 7461610-0 (Version None)
Quarter: 2011Q2

REPORT INFORMATION
  Report Type: 
  Country: None (occurrence: None)
  Receive Date: 20110506
  Receipt Date: 20110425
  Transmission Date: 20111010
  Serious: Yes (Other)
  Sender: FDA-Public Use
  Company Number: US-JNJFOC-20110407362

PATIENT
  Age: 58 Year
  Sex: Female

DRUGS (9)
  1. ALBUTEROL [Concomitant]
     Indication: ILL-DEFINED DISORDER
  2. EFFEXOR [Concomitant]
  3. LISINOPRIL [Concomitant]
  4. XANAX [Concomitant]
  5. ALLEGRA [Concomitant]
  6. STELARA [Suspect]
     Indication: PSORIASIS
     Route: 058
  7. ADVAIR DISKUS 100/50 [Concomitant]
  8. METFORMIN [Concomitant]
  9. GLIPIZIDE [Concomitant]

REACTIONS (1)
  - VASCULITIS [None]
